FAERS Safety Report 4973372-7 (Version None)
Quarter: 2006Q2

REPORT INFORMATION
  Report Type: 
  Country: None (occurrence: None)
  Receive Date: 20060414
  Receipt Date: 20060410
  Transmission Date: 20061013
  Serious: Yes (Hospitalization)
  Sender: FDA-Public Use
  Company Number: ES-BOEHRINGER INGELHEIM PHARMACEUTICALS, INC.-2006-DE-01887GD

PATIENT
  Age: 84 Year
  Sex: Male

DRUGS (10)
  1. PERSANTIN [Suspect]
     Route: 048
  2. DIOVAN [Suspect]
     Route: 048
  3. TORSEMIDE [Suspect]
     Route: 048
  4. NORPRAMIN [Suspect]
     Route: 048
  5. MIOL [Suspect]
     Route: 048
  6. DITENSOR [Suspect]
     Route: 048
  7. EULEXIN [Suspect]
     Route: 048
  8. GELOCATIL [Suspect]
     Route: 048
  9. ALMAX [Suspect]
     Route: 048
  10. BAYCIP [Suspect]
     Route: 048

REACTIONS (3)
  - GASTRIC HAEMORRHAGE [None]
  - GASTRIC MUCOSAL LESION [None]
  - HAEMORRHAGE [None]
